FAERS Safety Report 19681586 (Version 5)
Quarter: 2022Q1

REPORT INFORMATION
  Report Type: Spontaneous
  Country: GB (occurrence: GB)
  Receive Date: 20210810
  Receipt Date: 20220312
  Transmission Date: 20220424
  Serious: Yes (Hospitalization, Other)
  Sender: FDA-Public Use
  Company Number: GB-CELGENE-GBR-20180410416

PATIENT
  Age: 43 Year
  Sex: Female

DRUGS (31)
  1. ABRAXANE [Suspect]
     Active Substance: PACLITAXEL
     Indication: Breast cancer metastatic
     Dosage: 840 MILLIGRAM
     Route: 041
     Dates: start: 20150615, end: 20150615
  2. ABRAXANE [Suspect]
     Active Substance: PACLITAXEL
     Dosage: 567 MILLIGRAM
     Route: 041
     Dates: start: 20150616, end: 20150616
  3. ABRAXANE [Suspect]
     Active Substance: PACLITAXEL
     Dosage: 130 MILLIGRAM
     Route: 041
     Dates: start: 20160709, end: 20160709
  4. ABRAXANE [Suspect]
     Active Substance: PACLITAXEL
     Dosage: 340 MILLIGRAM
     Route: 041
     Dates: start: 20150730, end: 20150820
  5. ABRAXANE [Suspect]
     Active Substance: PACLITAXEL
     Dosage: 340 MILLIGRAM
     Route: 041
     Dates: start: 20150820, end: 20150820
  6. ABRAXANE [Suspect]
     Active Substance: PACLITAXEL
     Dosage: 340 MILLIGRAM
     Route: 041
     Dates: start: 20150910, end: 20150910
  7. ABRAXANE [Suspect]
     Active Substance: PACLITAXEL
     Dosage: 340 MILLIGRAM
     Route: 041
     Dates: start: 20151022, end: 20151022
  8. ABRAXANE [Suspect]
     Active Substance: PACLITAXEL
     Dosage: 340 MILLIGRAM
     Route: 041
     Dates: start: 20150730, end: 20150730
  9. TRASTUZUMAB [Suspect]
     Active Substance: TRASTUZUMAB
     Indication: Breast cancer metastatic
     Dosage: 420 MILLIGRAM
     Route: 041
     Dates: start: 20150609
  10. TRASTUZUMAB [Suspect]
     Active Substance: TRASTUZUMAB
     Dosage: 567 MILLIGRAM
     Route: 041
     Dates: start: 20150616, end: 20150616
  11. TRASTUZUMAB [Suspect]
     Active Substance: TRASTUZUMAB
     Dosage: 420 MILLIGRAM
     Route: 041
     Dates: start: 20150709, end: 20150709
  12. PERTUZUMAB [Suspect]
     Active Substance: PERTUZUMAB
     Indication: Breast cancer metastatic
     Dosage: 420 MILLIGRAM
     Route: 041
     Dates: start: 20150615, end: 20150615
  13. PERTUZUMAB [Suspect]
     Active Substance: PERTUZUMAB
     Dosage: 567 MILLIGRAM
     Route: 041
     Dates: start: 20150616, end: 20150616
  14. PERTUZUMAB [Suspect]
     Active Substance: PERTUZUMAB
     Dosage: 420 MILLIGRAM
     Route: 041
     Dates: start: 20150709, end: 20150709
  15. PERTUZUMAB [Suspect]
     Active Substance: PERTUZUMAB
     Dosage: 10 MILLIGRAM
     Route: 041
     Dates: start: 20150907, end: 20150907
  16. DOCETAXEL [Suspect]
     Active Substance: DOCETAXEL
     Indication: Breast cancer metastatic
     Dosage: 130 MILLIGRAM
     Route: 041
     Dates: start: 20150616, end: 20150709
  17. DOCETAXEL [Suspect]
     Active Substance: DOCETAXEL
     Dosage: 130 MILLIGRAM
     Route: 041
     Dates: start: 20150709, end: 20150709
  18. DOCETAXEL [Suspect]
     Active Substance: DOCETAXEL
     Route: 041
     Dates: start: 20150709, end: 20150709
  19. TRAMADOL [Concomitant]
     Active Substance: TRAMADOL
     Indication: Pain
     Dosage: 100 MILLIGRAM
     Route: 048
  20. TRAMADOL [Concomitant]
     Active Substance: TRAMADOL
     Dosage: 50 MILLIGRAM
     Route: 048
  21. DOMPERIDONE [Concomitant]
     Active Substance: DOMPERIDONE
     Indication: Product used for unknown indication
     Dosage: 30 MILLIGRAM
     Route: 048
     Dates: start: 20150709
  22. DOMPERIDONE [Concomitant]
     Active Substance: DOMPERIDONE
     Dosage: 30 MILLIGRAM
     Route: 048
     Dates: start: 20190709
  23. METFORMIN [Concomitant]
     Active Substance: METFORMIN HYDROCHLORIDE
     Indication: Diabetes mellitus
     Dosage: 2 GRAM
     Route: 048
  24. METFORMIN [Concomitant]
     Active Substance: METFORMIN HYDROCHLORIDE
     Dosage: 1 GRAM
     Route: 048
  25. CHLORPHENIRAMINE MALEATE [Concomitant]
     Active Substance: CHLORPHENIRAMINE MALEATE
     Indication: Product used for unknown indication
     Dosage: 10 MILLIGRAM
     Route: 041
     Dates: start: 20150709, end: 20150709
  26. HYDROCORTISONE [Concomitant]
     Active Substance: HYDROCORTISONE
     Indication: Product used for unknown indication
     Dosage: 100 MILLIGRAM
     Route: 041
     Dates: start: 20150709, end: 20150709
  27. COCODAMOL [Concomitant]
     Active Substance: ACETAMINOPHEN\CODEINE PHOSPHATE
     Indication: Product used for unknown indication
     Dosage: 2000 MILLIGRAM
     Route: 048
  28. COCODAMOL [Concomitant]
     Active Substance: ACETAMINOPHEN\CODEINE PHOSPHATE
     Dosage: 500 MILLIGRAM
     Route: 048
  29. AMOXICILLIN\CLAVULANATE POTASSIUM [Concomitant]
     Active Substance: AMOXICILLIN\CLAVULANATE POTASSIUM
     Indication: Cough
     Route: 048
     Dates: start: 20180110, end: 20180117
  30. CODEINE PHOSPHATE [Concomitant]
     Active Substance: CODEINE PHOSPHATE
     Indication: Product used for unknown indication
     Route: 065
  31. CODEINE PHOSPHATE [Concomitant]
     Active Substance: CODEINE PHOSPHATE
     Dosage: 500 MILLIGRAM
     Route: 048

REACTIONS (10)
  - Febrile neutropenia [Recovered/Resolved]
  - Neuropathy peripheral [Not Recovered/Not Resolved]
  - Mucosal inflammation [Recovered/Resolved]
  - Swelling [Not Recovered/Not Resolved]
  - Fatigue [Recovered/Resolved]
  - Chest pain [Not Recovered/Not Resolved]
  - Bone pain [Not Recovered/Not Resolved]
  - Diarrhoea [Recovered/Resolved]
  - Vomiting [Not Recovered/Not Resolved]
  - Nausea [Not Recovered/Not Resolved]

NARRATIVE: CASE EVENT DATE: 20150908
